FAERS Safety Report 6389433-4 (Version None)
Quarter: 2009Q4

REPORT INFORMATION
  Report Type: 
  Country: None (occurrence: None)
  Receive Date: 20091006
  Receipt Date: 20090929
  Transmission Date: 20100525
  Serious: Yes (Hospitalization)
  Sender: FDA-Public Use
  Company Number: US-JNJFOC-20091000268

PATIENT
  Sex: Female
  Weight: 72.58 kg

DRUGS (1)
  1. LEVAQUIN [Suspect]
     Indication: SINUSITIS
     Route: 048
     Dates: start: 20090301, end: 20090301

REACTIONS (3)
  - LIGAMENT RUPTURE [None]
  - MENISCUS LESION [None]
  - PAIN IN EXTREMITY [None]
